FAERS Safety Report 6740258-7 (Version None)
Quarter: 2010Q2

REPORT INFORMATION
  Report Type: 
  Country: None (occurrence: None)
  Receive Date: 20100525
  Receipt Date: 20100521
  Transmission Date: 20101027
  Serious: Yes (Disabling)
  Sender: FDA-Public Use
  Company Number: US-MERCK-1003USA03550

PATIENT
  Age: 59 Year
  Sex: Female
  Weight: 58 kg

DRUGS (2)
  1. PRIMAXIN [Suspect]
     Indication: MYCOBACTERIUM ABSCESSUS INFECTION
     Route: 042
     Dates: start: 20100226, end: 20100422
  2. AMIKACINA [Concomitant]
     Indication: MYCOBACTERIUM ABSCESSUS INFECTION
     Dosage: 860 MG EVERY 48HRS
     Route: 042
     Dates: start: 20100226, end: 20100422

REACTIONS (2)
  - AGEUSIA [None]
  - DYSGEUSIA [None]
